FAERS Safety Report 13660318 (Version 2)
Quarter: 2017Q2

REPORT INFORMATION
  Report Type: Spontaneous
  Country: CN (occurrence: CN)
  Receive Date: 20170616
  Receipt Date: 20170629
  Transmission Date: 20170830
  Serious: Yes (Other)
  Sender: FDA-Public Use
  Company Number: CN-PFIZER INC-2017260658

PATIENT
  Age: 26 Year
  Sex: Female

DRUGS (16)
  1. CYTOSINE ARABINOSIDE [Concomitant]
     Active Substance: CYTARABINE
     Indication: ACUTE LYMPHOCYTIC LEUKAEMIA
     Dosage: UNK, CYCLIC (5 CYCLES)
     Dates: start: 201311, end: 201404
  2. DASATINIB [Suspect]
     Active Substance: DASATINIB
     Indication: ACUTE LYMPHOCYTIC LEUKAEMIA
     Dosage: 150 MG, UNK
     Dates: start: 20131007
  3. L-ASPARAGINASE [Suspect]
     Active Substance: ASPARAGINASE
     Indication: SALVAGE THERAPY
  4. DEXAMETHASONE. [Concomitant]
     Active Substance: DEXAMETHASONE
     Indication: ACUTE LYMPHOCYTIC LEUKAEMIA
     Dosage: UNK
     Dates: start: 20131007
  5. DASATINIB [Suspect]
     Active Substance: DASATINIB
     Dosage: 150 MG, UNK
     Dates: start: 20140425
  6. VINCRISTINE [Concomitant]
     Active Substance: VINCRISTINE
     Indication: ACUTE LYMPHOCYTIC LEUKAEMIA
     Dosage: UNK
     Dates: start: 20131007
  7. DAUNORUBICIN [Concomitant]
     Active Substance: DAUNORUBICIN
     Indication: ACUTE LYMPHOCYTIC LEUKAEMIA
     Dosage: UNK
     Dates: start: 20131007
  8. CYCLOPHOSPHAMIDE. [Concomitant]
     Active Substance: CYCLOPHOSPHAMIDE
     Indication: ACUTE LYMPHOCYTIC LEUKAEMIA
     Dosage: UNK
     Dates: start: 20131007
  9. CYCLOPHOSPHAMIDE. [Concomitant]
     Active Substance: CYCLOPHOSPHAMIDE
     Dosage: UNK, CYCLIC (5 CYCLES)
     Dates: start: 201311, end: 201404
  10. DAUNORUBICIN [Concomitant]
     Active Substance: DAUNORUBICIN
     Dosage: UNK, CYCLIC (5 CYCLES)
     Dates: start: 201311, end: 201404
  11. L-ASPARAGINASE [Suspect]
     Active Substance: ASPARAGINASE
     Indication: ACUTE LYMPHOCYTIC LEUKAEMIA
     Dosage: 10000 IU, UNK (FROM DAY 1 TO DAY 7, ONCE PER DAY)
     Dates: start: 20140425
  12. 6-MERCAPTOPURINE MONOHYDRATE [Concomitant]
     Active Substance: MERCAPTOPURINE
     Indication: ACUTE LYMPHOCYTIC LEUKAEMIA
     Dosage: UNK, CYCLIC (5 CYCLES)
     Dates: start: 201311, end: 201404
  13. METHOTREXATE SODIUM. [Suspect]
     Active Substance: METHOTREXATE SODIUM
     Indication: SALVAGE THERAPY
     Dosage: 3.0 G/M2 (ON DAY 1)
     Dates: start: 20140425
  14. DASATINIB [Suspect]
     Active Substance: DASATINIB
     Indication: SALVAGE THERAPY
     Dosage: 150 MG, UNK
     Route: 048
     Dates: start: 201311, end: 201404
  15. VINCRISTINE [Concomitant]
     Active Substance: VINCRISTINE
     Dosage: UNK, CYCLIC (5 CYCLES)
     Dates: start: 201311, end: 201404
  16. METHOTREXATE SODIUM. [Suspect]
     Active Substance: METHOTREXATE SODIUM
     Indication: ACUTE LYMPHOCYTIC LEUKAEMIA
     Dosage: UNK, CYCLIC (HIGH-DOSE, 5 CYCLES)
     Dates: start: 201311, end: 201404

REACTIONS (1)
  - Drug-induced liver injury [Recovered/Resolved]
